FAERS Safety Report 20063544 (Version 2)
Quarter: 2022Q1

REPORT INFORMATION
  Report Type: Spontaneous
  Country: TR (occurrence: TR)
  Receive Date: 20211112
  Receipt Date: 20220316
  Transmission Date: 20220423
  Serious: No
  Sender: FDA-Public Use
  Company Number: TR-LUPIN PHARMACEUTICALS INC.-2021-21534

PATIENT
  Age: 66 Year
  Sex: Female

DRUGS (2)
  1. CLOBETASOL PROPIONATE [Suspect]
     Active Substance: CLOBETASOL PROPIONATE
     Indication: Lichen sclerosus
     Dosage: UNK FOR 2 MONTHS, (0.5 % OINTMENT)
     Route: 061
  2. ACITRETIN [Suspect]
     Active Substance: ACITRETIN
     Indication: Lichen sclerosus
     Dosage: 30 MILLIGRAM, QD
     Route: 065

REACTIONS (1)
  - Drug ineffective [Unknown]
